FAERS Safety Report 8868991 (Version 1)
Quarter: 2012Q4

REPORT INFORMATION
  Report Type: 
  Country: US (occurrence: US)
  Receive Date: 20121023
  Receipt Date: 20121023
  Transmission Date: 20130627
  Serious: No
  Sender: FDA-Public Use
  Company Number: US-AMGEN-USASP2012054950

PATIENT
  Age: 39 Year
  Sex: Female

DRUGS (3)
  1. ENBREL [Suspect]
     Indication: PRODUCT USED FOR UNKNOWN INDICATION
     Dosage: 50 mg, qwk
     Route: 058
  2. CALCIUM [Concomitant]
     Dosage: 500 UNK, UNK
  3. VITAMIN D /00107901/ [Concomitant]
     Dosage: 400 UNK, UNK

REACTIONS (2)
  - Drug ineffective [Unknown]
  - Inflammation [Unknown]
